FAERS Safety Report 7212263-8 (Version None)
Quarter: 2010Q4

REPORT INFORMATION
  Report Type: 
  Country: None (occurrence: None)
  Receive Date: 20101227
  Receipt Date: 20101213
  Transmission Date: 20110411
  Serious: Yes (Life-Threatening, Hospitalization, Other)
  Sender: FDA-Public Use
  Company Number: 2010P1003269

PATIENT
  Sex: Female
  Weight: 84 kg

DRUGS (4)
  1. ESLAX (NO PREF. NAME) [Suspect]
     Indication: INDUCTION OF ANAESTHESIA
     Dosage: 10 MG; X1; IV, 40 MG; X1; IV
     Route: 042
     Dates: start: 20100407, end: 20100407
  2. ULTIVA [Suspect]
     Indication: GENERAL ANAESTHESIA
     Dosage: 0.3 MCG/KG/MIN; ;IV
     Route: 042
     Dates: start: 20100407, end: 20100407
  3. SEVOFRANE LIQUID (NO PREF. NAME) [Suspect]
     Indication: GENERAL ANAESTHESIA
     Dosage: 2-5 PCT; ; INH
     Route: 055
     Dates: start: 20100407, end: 20100407
  4. PROPOFOL [Suspect]
     Indication: INDUCTION OF ANAESTHESIA
     Dosage: 200 MG; QD; IV
     Route: 042
     Dates: start: 20100407, end: 20100407

REACTIONS (6)
  - ANAPHYLACTIC SHOCK [None]
  - BRONCHOSPASM [None]
  - DYSPNOEA [None]
  - ERYTHEMA [None]
  - HYPOVENTILATION [None]
  - PILOERECTION [None]
